FAERS Safety Report 4441917-1 (Version None)
Quarter: 2004Q3

REPORT INFORMATION
  Report Type: 
  Country: None (occurrence: None)
  Receive Date: 20040901
  Receipt Date: 20040830
  Transmission Date: 20050211
  Serious: Yes (Other)
  Sender: FDA-Public Use
  Company Number: 10054504-04A26BL-1

PATIENT
  Sex: Female

DRUGS (2)
  1. DEXTROSE 5% [Suspect]
     Dates: start: 20040413
  2. CARBOPLATIN [Concomitant]

REACTIONS (11)
  - ABDOMINAL PAIN [None]
  - COLD SWEAT [None]
  - DYSPNOEA [None]
  - HYPERHIDROSIS [None]
  - HYPOTENSION [None]
  - INFUSION RELATED REACTION [None]
  - NAUSEA [None]
  - OXYGEN SATURATION DECREASED [None]
  - PRURITUS [None]
  - TACHYCARDIA [None]
  - VOMITING [None]
